FAERS Safety Report 5647934-8 (Version None)
Quarter: 2008Q1

REPORT INFORMATION
  Report Type: 
  Country: None (occurrence: None)
  Receive Date: 20080229
  Receipt Date: 20080220
  Transmission Date: 20080703
  Serious: Yes (Hospitalization)
  Sender: FDA-Public Use
  Company Number: 163-21880-08021305

PATIENT
  Age: 63 Year
  Sex: Female

DRUGS (11)
  1. REVLIMID [Suspect]
     Indication: MYELODYSPLASTIC SYNDROME
     Dosage: 10 MG, EVERY DAY FOR 3 WEEKS, ORAL
     Route: 048
     Dates: start: 20061214
  2. TRAZONE HCL (TRAZONE HYDROCHLORIDE) [Concomitant]
  3. ARANESP [Concomitant]
  4. PROCARDIA XL (NIFEDIPINE) (TABLETS) [Concomitant]
  5. METOPROLOL TARTRATE [Concomitant]
  6. PREMARIN [Concomitant]
  7. MEGACE ES (MEGESTROL ACETATE) [Concomitant]
  8. ENDOCET (OXYCOCET) (TABLETS) [Concomitant]
  9. DURAGESIC-100 [Concomitant]
  10. VITAMIN B12 [Concomitant]
  11. CARAFATE (SUCRALFATE) (TABLETS) [Concomitant]

REACTIONS (2)
  - CHOLELITHIASIS [None]
  - PAIN [None]
